FAERS Safety Report 4428508-3 (Version None)
Quarter: 2004Q3

REPORT INFORMATION
  Report Type: 
  Country: None (occurrence: None)
  Receive Date: 20040816
  Receipt Date: 20040806
  Transmission Date: 20050211
  Serious: Yes (Other)
  Sender: FDA-Public Use
  Company Number: USA-2003-0009339

PATIENT
  Age: 60 Year
  Sex: Female
  Weight: 43.1 kg

DRUGS (5)
  1. SENOKOT [Suspect]
     Indication: CONSTIPATION
     Dosage: SEE TEXT, ORAL
     Route: 048
     Dates: end: 20030408
  2. WYGESIC (DEXTROPROPOXYPHENE HYDROCHLORIDE) [Concomitant]
  3. ACTIVELLE [Concomitant]
  4. TAGAMET [Concomitant]
  5. FOLIC ACID [Concomitant]

REACTIONS (6)
  - DRUG DEPENDENCE [None]
  - FAECALOMA [None]
  - GASTROINTESTINAL FUNGAL INFECTION [None]
  - GASTROINTESTINAL TRACT MUCOSAL PIGMENTATION [None]
  - GASTROOESOPHAGEAL REFLUX DISEASE [None]
  - MELANOSIS COLI [None]
